FAERS Safety Report 4816037-4 (Version None)
Quarter: 2005Q4

REPORT INFORMATION
  Report Type: 
  Country: None (occurrence: None)
  Receive Date: 20051026
  Receipt Date: 20051013
  Transmission Date: 20060501
  Serious: Yes (Hospitalization)
  Sender: FDA-Public Use
  Company Number: HQWYE033614OCT05

PATIENT
  Age: 29 Year
  Sex: Male
  Weight: 123.49 kg

DRUGS (8)
  1. EFFEXOR XR [Suspect]
     Indication: PANIC DISORDER
     Dosage: DOSE HAD RANGED FROM 25 MG TO 300MG/DAY ORAL SEE IMAGE
     Route: 048
     Dates: start: 20020101, end: 20020101
  2. EFFEXOR XR [Suspect]
     Indication: PANIC DISORDER
     Dosage: DOSE HAD RANGED FROM 25 MG TO 300MG/DAY ORAL SEE IMAGE
     Route: 048
     Dates: end: 20020101
  3. EFFEXOR XR [Suspect]
     Indication: PANIC DISORDER
     Dosage: DOSE HAD RANGED FROM 25 MG TO 300MG/DAY ORAL SEE IMAGE
     Route: 048
     Dates: start: 20050101, end: 20050101
  4. EFFEXOR XR [Suspect]
     Indication: PANIC DISORDER
     Dosage: DOSE HAD RANGED FROM 25 MG TO 300MG/DAY ORAL SEE IMAGE
     Route: 048
     Dates: start: 20050101, end: 20050101
  5. EFFEXOR XR [Suspect]
     Indication: PANIC DISORDER
     Dosage: DOSE HAD RANGED FROM 25 MG TO 300MG/DAY ORAL SEE IMAGE
     Route: 048
     Dates: start: 20050801, end: 20050101
  6. EFFEXOR XR [Suspect]
     Indication: PANIC DISORDER
     Dosage: DOSE HAD RANGED FROM 25 MG TO 300MG/DAY ORAL SEE IMAGE
     Route: 048
     Dates: start: 20050101, end: 20050801
  7. EFFEXOR XR [Suspect]
     Indication: PANIC DISORDER
     Dosage: DOSE HAD RANGED FROM 25 MG TO 300MG/DAY ORAL SEE IMAGE
     Route: 048
     Dates: start: 20050901, end: 20051001
  8. EFFEXOR XR [Suspect]
     Indication: PANIC DISORDER
     Dosage: DOSE HAD RANGED FROM 25 MG TO 300MG/DAY ORAL SEE IMAGE
     Route: 048
     Dates: start: 20051001

REACTIONS (4)
  - DILATATION ATRIAL [None]
  - DRUG WITHDRAWAL SYNDROME [None]
  - HEART RATE INCREASED [None]
  - SUICIDAL IDEATION [None]
